FAERS Safety Report 6528680-5 (Version None)
Quarter: 2010Q1

REPORT INFORMATION
  Report Type: 
  Country: None (occurrence: None)
  Receive Date: 20100106
  Receipt Date: 20091230
  Transmission Date: 20100710
  Serious: Yes (Other)
  Sender: FDA-Public Use
  Company Number: US-JNJFOC-20100100360

PATIENT
  Age: 53 Year
  Sex: Female
  Weight: 63.5 kg

DRUGS (5)
  1. TYLENOL (CAPLET) [Suspect]
     Route: 048
  2. TYLENOL (CAPLET) [Suspect]
     Indication: ARTHRITIS
     Route: 048
  3. VICODIN [Concomitant]
     Indication: HIP SURGERY
  4. XANAX [Concomitant]
     Indication: ANXIETY
  5. ANTIDEPRESSANT [Concomitant]
     Indication: DEPRESSION

REACTIONS (5)
  - DIARRHOEA [None]
  - MYALGIA [None]
  - NAUSEA [None]
  - PRODUCT QUALITY ISSUE [None]
  - RECTAL HAEMORRHAGE [None]
